FAERS Safety Report 6046599-3 (Version None)
Quarter: 2009Q1

REPORT INFORMATION
  Report Type: 
  Country: None (occurrence: None)
  Receive Date: 20090122
  Receipt Date: 20090113
  Transmission Date: 20090719
  Serious: Yes (Other)
  Sender: FDA-Public Use
  Company Number: PHHY2008JP32579

PATIENT
  Age: 53 Year
  Sex: Male

DRUGS (4)
  1. DIOVAN [Suspect]
     Indication: HYPERTENSION
     Dosage: 80 MG, QD
     Route: 048
     Dates: start: 20070101, end: 20070701
  2. DIOVAN [Suspect]
     Dosage: 40 MG, QD
     Route: 048
     Dates: start: 20070701
  3. ADALAT CC [Concomitant]
     Dosage: 20 MG
     Route: 048
     Dates: start: 20031001
  4. MYTEAR [Concomitant]
     Dosage: UNK
     Route: 047
     Dates: start: 20071101

REACTIONS (3)
  - CATARACT [None]
  - CATARACT OPERATION [None]
  - DRY EYE [None]
